FAERS Safety Report 11300195 (Version 1)
Quarter: 2015Q3

REPORT INFORMATION
  Report Type: Spontaneous
  Country: US (occurrence: US)
  Receive Date: 20150722
  Receipt Date: 20150722
  Transmission Date: 20151125
  Serious: No
  Sender: FDA-Public Use
  Company Number: US-ELI_LILLY_AND_COMPANY-US201307008290

PATIENT
  Age: 40 Year
  Sex: Female

DRUGS (1)
  1. EVISTA [Suspect]
     Active Substance: RALOXIFENE HYDROCHLORIDE
     Dosage: UNK, QD
     Route: 065
     Dates: start: 201201

REACTIONS (2)
  - Hair disorder [Unknown]
  - Trichorrhexis [Unknown]

NARRATIVE: CASE EVENT DATE: 201303
